FAERS Safety Report 19022115 (Version 1)
Quarter: 2021Q1

REPORT INFORMATION
  Report Type: Report from Study
  Country: None (occurrence: US)
  Receive Date: 20210318
  Receipt Date: 20210318
  Transmission Date: 20210420
  Serious: Yes (Hospitalization, Other)
  Sender: FDA-Public Use
  Company Number: US-ABBVIE-18K-163-2598314-00

PATIENT
  Age: 76 Year
  Sex: Female
  Weight: 80.36 kg

DRUGS (6)
  1. HUMIRA [Suspect]
     Active Substance: ADALIMUMAB
     Indication: CROHN^S DISEASE
     Route: 058
     Dates: start: 2016
  2. REPATHA [Suspect]
     Active Substance: EVOLOCUMAB
     Indication: PRODUCT USED FOR UNKNOWN INDICATION
     Route: 065
  3. METOPROLOL. [Concomitant]
     Active Substance: METOPROLOL
     Indication: HYPERTENSION
     Route: 065
  4. TRAMADOL. [Concomitant]
     Active Substance: TRAMADOL
     Indication: BACK PAIN
     Route: 065
  5. AZATHIOPRINE. [Suspect]
     Active Substance: AZATHIOPRINE
     Indication: RENAL LITHIASIS PROPHYLAXIS
     Route: 065
  6. PAROXETINE. [Concomitant]
     Active Substance: PAROXETINE
     Indication: INSOMNIA
     Route: 065

REACTIONS (9)
  - Blister [Not Recovered/Not Resolved]
  - Rhinalgia [Not Recovered/Not Resolved]
  - Nephrolithiasis [Recovered/Resolved]
  - Alopecia [Not Recovered/Not Resolved]
  - Eye infection [Recovering/Resolving]
  - Ingrowing nail [Recovered/Resolved]
  - Rhinalgia [Recovered/Resolved]
  - Blister [Recovered/Resolved]
  - Eye swelling [Recovered/Resolved]

NARRATIVE: CASE EVENT DATE: 2018
